FAERS Safety Report 6291273-1 (Version None)
Quarter: 2009Q3

REPORT INFORMATION
  Report Type: 
  Country: None (occurrence: None)
  Receive Date: 20090728
  Receipt Date: 20090728
  Transmission Date: 20100115
  Serious: Yes (Hospitalization)
  Sender: FDA-Public Use
  Company Number: None

PATIENT
  Age: 72 Year
  Sex: Female
  Weight: 52.1637 kg

DRUGS (1)
  1. NEUTROGENA BUILD-A-TAN GRADUAL SUNLESS TANNER [Suspect]
     Indication: TANNING
     Dosage: TOPICAL
     Route: 061
     Dates: start: 20090625, end: 20090703

REACTIONS (3)
  - DYSPNOEA [None]
  - HYPOXIA [None]
  - VERTIGO [None]
